FAERS Safety Report 15276597 (Version 1)
Quarter: 2018Q3

REPORT INFORMATION
  Report Type: Spontaneous
  Country: DE (occurrence: DE)
  Receive Date: 20180814
  Receipt Date: 20180814
  Transmission Date: 20181010
  Serious: Yes (Death, Life-Threatening, Other)
  Sender: FDA-Public Use
  Company Number: DE-PURACAP PHARMACEUTICAL LLC-2018EPC00373

PATIENT
  Age: 41 Year
  Sex: Male

DRUGS (3)
  1. TRIMIPRAMINE MALEATE. [Suspect]
     Active Substance: TRIMIPRAMINE MALEATE
     Route: 065
  2. OLANZAPINE. [Suspect]
     Active Substance: OLANZAPINE
     Route: 065
  3. 5F?ABD [Suspect]
     Active Substance: 5-FLUORO-ADB, (+/-)-
     Route: 065

REACTIONS (4)
  - Coma [Not Recovered/Not Resolved]
  - Aspiration [Fatal]
  - Toxicity to various agents [Not Recovered/Not Resolved]
  - Drug interaction [Not Recovered/Not Resolved]

NARRATIVE: CASE EVENT DATE: 201602
